FAERS Safety Report 4471505-2 (Version None)
Quarter: 2004Q4

REPORT INFORMATION
  Report Type: 
  Country: None (occurrence: None)
  Receive Date: 20041008
  Receipt Date: 20041008
  Transmission Date: 20050328
  Serious: Yes (Hospitalization)
  Sender: FDA-Public Use
  Company Number: None

PATIENT
  Age: 56 Year
  Sex: Female
  Weight: 71.2147 kg

DRUGS (8)
  1. GEMCITABINE [Suspect]
     Indication: NON-SMALL CELL LUNG CANCER
     Dosage: 600MG/M2 DAY 1, 8 INTRAVENOU
     Route: 042
     Dates: start: 20040621, end: 20040628
  2. CARBOPLATIN [Suspect]
     Dosage: AUC 2 DAY 1, 8 INTRAVENOU
     Route: 042
  3. LOVENOX [Concomitant]
  4. SYNTHROID [Concomitant]
  5. GUAIFENSIN [Concomitant]
  6. LOPRESSOR [Concomitant]
  7. ALBUTEROL [Concomitant]
  8. ZOFRAN [Concomitant]

REACTIONS (4)
  - FEBRILE NEUTROPENIA [None]
  - LETHARGY [None]
  - OESOPHAGITIS [None]
  - PHARYNGOLARYNGEAL PAIN [None]
